FAERS Safety Report 7931613-8 (Version None)
Quarter: 2011Q4

REPORT INFORMATION
  Report Type: 
  Country: None (occurrence: None)
  Receive Date: 20111121
  Receipt Date: 20111108
  Transmission Date: 20120403
  Serious: Yes (Other)
  Sender: FDA-Public Use
  Company Number: PHHY2011BR099238

PATIENT
  Sex: Female

DRUGS (1)
  1. DIOVAN [Suspect]
     Dosage: UNK UKN, UNK

REACTIONS (6)
  - AMNESIA [None]
  - INSOMNIA [None]
  - CEREBRAL ISCHAEMIA [None]
  - CEREBROVASCULAR ACCIDENT [None]
  - HEMIPLEGIA [None]
  - AGITATION [None]
